FAERS Safety Report 6887018-4 (Version None)
Quarter: 2010Q3

REPORT INFORMATION
  Report Type: 
  Country: None (occurrence: None)
  Receive Date: 20100730
  Receipt Date: 20100721
  Transmission Date: 20110219
  Serious: Yes (Hospitalization)
  Sender: FDA-Public Use
  Company Number: DE-BRISTOL-MYERS SQUIBB COMPANY-15175284

PATIENT
  Age: 55 Year
  Sex: Male
  Weight: 42 kg

DRUGS (3)
  1. CETUXIMAB [Suspect]
     Indication: NON-SMALL CELL LUNG CANCER
     Dosage: MOST RECENT INFUSION ON 10JUN2010.ABS DOSE 375MG;WITHDRAWN ON 23JUN2010.
     Route: 042
     Dates: start: 20100224, end: 20100610
  2. CARBOPLATIN [Suspect]
     Indication: NON-SMALL CELL LUNG CANCER
     Dosage: 1DF=5AUC 75%.ABS DOSE 420.MOST RECENT INFUSION ON 03MAY2010
     Route: 042
     Dates: start: 20100224
  3. GEMCITABINE HCL [Suspect]
     Indication: NON-SMALL CELL LUNG CANCER
     Dosage: MOST RECENT INFUSION ON 11MAY2010.ABS DOSE1359MG
     Route: 042
     Dates: start: 20100224

REACTIONS (1)
  - WEIGHT DECREASED [None]
